FAERS Safety Report 6650080-8 (Version None)
Quarter: 2010Q1

REPORT INFORMATION
  Report Type: 
  Country: None (occurrence: None)
  Receive Date: 20100322
  Receipt Date: 20100309
  Transmission Date: 20100710
  Serious: Yes (Death, Other)
  Sender: FDA-Public Use
  Company Number: GB-2010-0514

PATIENT
  Sex: Female

DRUGS (2)
  1. VINORELBINE [Suspect]
     Indication: BREAST CANCER METASTATIC
  2. TRASTUZUMAB [Suspect]
     Indication: BREAST CANCER METASTATIC

REACTIONS (5)
  - CLOSTRIDIAL INFECTION [None]
  - GENERAL PHYSICAL HEALTH DETERIORATION [None]
  - MEGACOLON [None]
  - MULTI-ORGAN FAILURE [None]
  - SEPTIC SHOCK [None]
